FAERS Safety Report 6802957-8 (Version None)
Quarter: 2010Q2

REPORT INFORMATION
  Report Type: 
  Country: None (occurrence: None)
  Receive Date: 20100628
  Receipt Date: 20100623
  Transmission Date: 20101027
  Serious: Yes (Death)
  Sender: FDA-Public Use
  Company Number: FI-JNJFOC-20030701793

PATIENT
  Age: 36 Year
  Sex: Male

DRUGS (2)
  1. IMODIUM [Suspect]
     Indication: GASTROENTERITIS
     Route: 048
     Dates: start: 19970215, end: 19970215
  2. CLOZAPINE [Interacting]
     Indication: SCHIZOPHRENIA, PARANOID TYPE
     Route: 048
     Dates: start: 19960704

REACTIONS (6)
  - BACTERIAL TOXAEMIA [None]
  - DRUG INTERACTION [None]
  - DRUG LEVEL INCREASED [None]
  - GASTROENTERITIS [None]
  - MEGACOLON [None]
  - TOXIC DILATATION OF INTESTINE [None]
